FAERS Safety Report 8598506-7 (Version None)
Quarter: 2012Q3

REPORT INFORMATION
  Report Type: 
  Country: None (occurrence: None)
  Receive Date: 20120816
  Receipt Date: 20120814
  Transmission Date: 20120928
  Serious: Yes (Other)
  Sender: FDA-Public Use
  Company Number: US-ROCHE-1094607

PATIENT
  Sex: Female
  Weight: 150 kg

DRUGS (17)
  1. PREVACID [Concomitant]
     Indication: GASTROOESOPHAGEAL REFLUX DISEASE
     Route: 048
     Dates: start: 20100927
  2. CETIRIZINE [Concomitant]
     Indication: HYPERSENSITIVITY
     Route: 048
     Dates: start: 20090313
  3. LEVOTHYROXINE SODIUM [Concomitant]
     Indication: HYPOTHYROIDISM
     Route: 048
  4. VITAMIN D [Concomitant]
     Route: 048
  5. CALCIUM CARBONATE [Concomitant]
     Indication: GASTROOESOPHAGEAL REFLUX DISEASE
     Route: 048
     Dates: start: 20100927
  6. TRIAMTERENE W HCTZ [Concomitant]
     Indication: HYPERTENSION
     Dosage: 37.5/25 MG
     Route: 048
  7. HYOSCYAMINE [Concomitant]
     Indication: GASTROINTESTINAL DISORDER
     Dosage: BEFORE MEAL
     Route: 048
  8. PROVENTIL [Concomitant]
     Indication: ASTHMA
     Dosage: 2 PUFFS INHALATION
     Route: 045
     Dates: start: 19910101
  9. LISINOPRIL [Concomitant]
     Indication: HYPERTENSION
     Route: 048
  10. GABAPENTIN [Concomitant]
     Indication: CONVULSION
     Route: 048
  11. AMLODIPINE [Concomitant]
     Indication: HYPERTENSION
     Route: 048
  12. SYMBICORT [Concomitant]
     Indication: ASTHMA
     Dosage: 100/4.5 MCG INHALATION
     Route: 045
     Dates: start: 20090313
  13. ASPIRIN [Concomitant]
     Indication: ASTHMA
     Route: 048
     Dates: start: 20100801
  14. ALBUTEROL [Concomitant]
     Indication: ASTHMA
     Dosage: INHALATION
     Route: 045
     Dates: start: 19910101
  15. SINGULAIR [Concomitant]
     Indication: ASTHMA
     Route: 048
  16. MULTI-VITAMIN [Concomitant]
     Route: 048
  17. XOLAIR [Suspect]
     Indication: ASTHMA
     Dosage: ROUTE SQ
     Dates: start: 20101005

REACTIONS (1)
  - NERVOUSNESS [None]
